FAERS Safety Report 10741505 (Version 1)
Quarter: 2015Q1

REPORT INFORMATION
  Report Type: Spontaneous
  Country: US (occurrence: None)
  Receive Date: 20150123
  Receipt Date: 20150123
  Transmission Date: 20150721
  Serious: Yes (Hospitalization)
  Sender: FDA-Public Use
  Company Number: None

PATIENT
  Age: 55 Year
  Sex: Male
  Weight: 87 kg

DRUGS (2)
  1. ETOMIDATE. [Concomitant]
     Active Substance: ETOMIDATE
  2. FENTANYL. [Suspect]
     Active Substance: FENTANYL
     Indication: CARDIOVERSION
     Dosage: 50MCG  ONCE  IV
     Route: 042
     Dates: start: 20140802

REACTIONS (1)
  - Muscle rigidity [None]

NARRATIVE: CASE EVENT DATE: 20140802
